FAERS Safety Report 24323624 (Version 1)
Quarter: 2024Q3

REPORT INFORMATION
  Report Type: Spontaneous
  Country: FR (occurrence: FR)
  Receive Date: 20240916
  Receipt Date: 20240916
  Transmission Date: 20241017
  Serious: Yes (Other)
  Sender: ELI LILLY AND CO
  Company Number: FR-Merck Healthcare KGaA-2024047870

PATIENT
  Sex: Female

DRUGS (1)
  1. ERBITUX [Suspect]
     Active Substance: CETUXIMAB
     Indication: Laryngeal cancer
     Dosage: UNK UNK, UNKNOWN
     Route: 065
     Dates: start: 202304, end: 202404

REACTIONS (1)
  - Lymphadenopathy mediastinal [Unknown]
